FAERS Safety Report 11993307 (Version 1)
Quarter: 2016Q1

REPORT INFORMATION
  Report Type: Report from Study
  Country: AT (occurrence: AT)
  Receive Date: 20160203
  Receipt Date: 20160203
  Transmission Date: 20160526
  Serious: Yes (Hospitalization, Other)
  Sender: FDA-Public Use
  Company Number: PHHY2015AT125687

PATIENT
  Sex: Female
  Weight: 72 kg

DRUGS (3)
  1. VOTRIENT [Suspect]
     Active Substance: PAZOPANIB HYDROCHLORIDE
     Dosage: 600 MG, QD
     Route: 065
     Dates: start: 20140917, end: 20141207
  2. VOTRIENT [Suspect]
     Active Substance: PAZOPANIB HYDROCHLORIDE
     Indication: METASTATIC RENAL CELL CARCINOMA
     Dosage: 800 MG, QD
     Route: 065
     Dates: start: 20140808, end: 20140916
  3. VOTRIENT [Suspect]
     Active Substance: PAZOPANIB HYDROCHLORIDE
     Dosage: 600 MG, QD
     Route: 065
     Dates: start: 20141220

REACTIONS (28)
  - Blood pressure increased [Unknown]
  - Diarrhoea [Recovered/Resolved]
  - Thirst decreased [Unknown]
  - Abdominal discomfort [Unknown]
  - Blood uric acid increased [Unknown]
  - Glomerular filtration rate decreased [Unknown]
  - Pallor [Unknown]
  - Abdominal pain [Recovering/Resolving]
  - Pancreatic atrophy [Unknown]
  - Scar [Unknown]
  - Decreased appetite [Unknown]
  - Blood triglycerides increased [Unknown]
  - Lipomatosis [Unknown]
  - Intervertebral disc degeneration [Unknown]
  - Blood urea increased [Unknown]
  - Electrocardiogram QRS complex prolonged [Unknown]
  - Skin warm [Unknown]
  - Scoliosis [Unknown]
  - Activated partial thromboplastin time prolonged [Unknown]
  - Eosinophil count increased [Unknown]
  - General physical health deterioration [Unknown]
  - Adrenal adenoma [Unknown]
  - Musculoskeletal disorder [Unknown]
  - Aspartate aminotransferase decreased [Unknown]
  - Dry skin [Unknown]
  - Osteochondrosis [Unknown]
  - White blood cell count decreased [Unknown]
  - Atrioventricular block first degree [Unknown]

NARRATIVE: CASE EVENT DATE: 201408
